FAERS Safety Report 7782067-6 (Version None)
Quarter: 2011Q3

REPORT INFORMATION
  Report Type: 
  Country: None (occurrence: None)
  Receive Date: 20110927
  Receipt Date: 20110924
  Transmission Date: 20111222
  Serious: Yes (Other)
  Sender: FDA-Public Use
  Company Number: FR-BAYER-2011-090747

PATIENT
  Age: 40 Year
  Sex: Male

DRUGS (1)
  1. MOXIFLOXACIN HCL [Suspect]
     Indication: ACUTE SINUSITIS

REACTIONS (3)
  - AFFECTIVE DISORDER [None]
  - ASTHENIA [None]
  - DEPRESSION [None]
